FAERS Safety Report 10639362 (Version 1)
Quarter: 2014Q4

REPORT INFORMATION
  Report Type: Spontaneous
  Country: US (occurrence: US)
  Receive Date: 20141208
  Receipt Date: 20141208
  Transmission Date: 20150529
  Serious: Yes (Hospitalization, Other)
  Sender: FDA-Public Use
  Company Number: US-MYLANLABS-2014M1012996

PATIENT

DRUGS (7)
  1. METOPROLOL TARTRATE. [Concomitant]
     Active Substance: METOPROLOL TARTRATE
     Dosage: 12.5 MG, BID
     Dates: start: 20141013
  2. ACYCLOVIR                          /00587301/ [Concomitant]
     Active Substance: ACYCLOVIR
     Dosage: 400 MG, BID
     Route: 048
     Dates: start: 20140806, end: 20141103
  3. FLUCONAZOLE. [Concomitant]
     Active Substance: FLUCONAZOLE
     Dosage: 400 MG, QD
     Dates: start: 20140428
  4. VANCOMYCIN [Suspect]
     Active Substance: VANCOMYCIN
     Dosage: UNK
     Route: 042
  5. TRIAMCINOLONE [Suspect]
     Active Substance: TRIAMCINOLONE
     Dosage: UNK, BID
     Route: 061
     Dates: start: 20140623
  6. LEVAQUIN [Suspect]
     Active Substance: LEVOFLOXACIN
     Indication: STENOTROPHOMONAS INFECTION
     Dosage: UNK
  7. LEVAQUIN [Suspect]
     Active Substance: LEVOFLOXACIN
     Indication: INFECTION

REACTIONS (3)
  - Fatigue [Not Recovered/Not Resolved]
  - Nausea [Not Recovered/Not Resolved]
  - Neuropathy peripheral [Not Recovered/Not Resolved]

NARRATIVE: CASE EVENT DATE: 201410
